FAERS Safety Report 7411452-7 (Version None)
Quarter: 2011Q2

REPORT INFORMATION
  Report Type: 
  Country: None (occurrence: None)
  Receive Date: 20110413
  Receipt Date: 20110405
  Transmission Date: 20111010
  Serious: Yes (Hospitalization)
  Sender: FDA-Public Use
  Company Number: GB-NOVOPROD-326231

PATIENT
  Age: 63 Year
  Sex: Male
  Weight: 110 kg

DRUGS (6)
  1. VICTOZA [Suspect]
     Indication: TYPE 2 DIABETES MELLITUS
     Dosage: 1.2 MG, QD
     Route: 058
     Dates: start: 20101209
  2. BENDROFLUMETHIAZIDE [Concomitant]
     Dosage: 2.5 MG, UNK
     Route: 048
  3. NOVOMIX 30 [Concomitant]
     Indication: TYPE 2 DIABETES MELLITUS
     Route: 058
  4. VALSARTAN [Concomitant]
     Dosage: 160 MG, UNK
     Route: 048
  5. METFORMIN [Concomitant]
     Dosage: 1 G, UNK
     Route: 048
  6. RIMONABANT [Concomitant]
     Dosage: 20 MG, QD
     Route: 048
     Dates: end: 20101202

REACTIONS (1)
  - PULMONARY EMBOLISM [None]
